FAERS Safety Report 6124743-7 (Version None)
Quarter: 2009Q1

REPORT INFORMATION
  Report Type: 
  Country: None (occurrence: None)
  Receive Date: 20090319
  Receipt Date: 20090309
  Transmission Date: 20090719
  Serious: Yes (Other)
  Sender: FDA-Public Use
  Company Number: BR-JNJFOC-20090302441

PATIENT
  Age: 35 Year
  Sex: Female
  Weight: 76 kg

DRUGS (4)
  1. ACETAMINOPHEN W/ CODEINE [Suspect]
     Indication: MIGRAINE
     Dosage: TOTAL DOSE UNTIL TIME OF CONTACT: 3 TABLETS. FREQUENCY NOT REPORTED.
     Route: 065
  2. METHYLDOPA [Concomitant]
     Indication: HYPERTENSION
     Dosage: 500 MG IN THE MORNING AND 250 MG AT NIGHT
  3. ACETAMINOPHEN [Concomitant]
     Indication: HEADACHE
  4. VITAMIN [Concomitant]
     Indication: VITAMIN SUPPLEMENTATION

REACTIONS (4)
  - DRUG EXPOSURE DURING PREGNANCY [None]
  - ERYTHEMA [None]
  - PRURITUS GENERALISED [None]
  - SWELLING FACE [None]
